FAERS Safety Report 9265856 (Version 1)
Quarter: 2013Q2

REPORT INFORMATION
  Report Type: Spontaneous
  Country: IT (occurrence: IT)
  Receive Date: 20130501
  Receipt Date: 20130501
  Transmission Date: 20140414
  Serious: Yes (Other)
  Sender: FDA-Public Use
  Company Number: IT-TEVA-401835ISR

PATIENT
  Age: 77 Year
  Sex: Female
  Weight: 52 kg

DRUGS (4)
  1. FLUOROURACILE TEVA [Suspect]
     Indication: GASTRIC CANCER
     Dosage: 1900MG, CYCLICAL
     Route: 042
     Dates: start: 20130228, end: 20130411
  2. DOCETAXEL HOSPIRA [Suspect]
     Dosage: 40MG, CYCLICAL
     Route: 042
     Dates: start: 20130228, end: 20130411
  3. PRONTO PLATAMINE [Suspect]
     Dosage: 80MG, CYCLICAL
     Route: 042
     Dates: start: 20130228, end: 20130411
  4. LIMPIDEX [Concomitant]
     Dosage: 30 MILLIGRAM DAILY;
     Route: 048
     Dates: start: 20130101, end: 20130411

REACTIONS (2)
  - Peripheral sensory neuropathy [Recovering/Resolving]
  - Skin exfoliation [Recovering/Resolving]
